FAERS Safety Report 4648613-6 (Version None)
Quarter: 2005Q2

REPORT INFORMATION
  Report Type: 
  Country: None (occurrence: None)
  Receive Date: 20050427
  Receipt Date: 20050411
  Transmission Date: 20051028
  Serious: Yes (Other)
  Sender: FDA-Public Use
  Company Number: 200504IM000133

PATIENT
  Age: 59 Year
  Sex: Male

DRUGS (2)
  1. INTERFERON ALFACON-1 [Suspect]
     Indication: CHRONIC HEPATITIS
     Dosage: SEE IMAGE
     Route: 058
  2. INTERFERON ALFACON-1 [Suspect]
     Indication: HEPATITIS C
     Dosage: SEE IMAGE
     Route: 058

REACTIONS (14)
  - BIOPSY SKIN ABNORMAL [None]
  - CHEST PAIN [None]
  - FATIGUE [None]
  - HEADACHE [None]
  - HYPERAESTHESIA [None]
  - INFLUENZA LIKE ILLNESS [None]
  - INJECTION SITE ERYTHEMA [None]
  - INJECTION SITE NECROSIS [None]
  - INJECTION SITE SCAR [None]
  - INJECTION SITE ULCER [None]
  - MYALGIA [None]
  - SKIN DISORDER [None]
  - SKIN NECROSIS [None]
  - VIRAL LOAD INCREASED [None]
